FAERS Safety Report 9221842 (Version 2)
Quarter: 2013Q3

REPORT INFORMATION
  Report Type: Spontaneous
  Country: US (occurrence: None)
  Receive Date: 20120913
  Receipt Date: 20130903
  Transmission Date: 20140515
  Serious: Yes (Hospitalization)
  Sender: FDA-Public Use
  Company Number: 130577

PATIENT
  Age: 70 Year
  Sex: Female
  Weight: 64 kg

DRUGS (1)
  1. ETOPOSIDE [Suspect]
     Indication: NON-SMALL CELL LUNG CANCER STAGE III
     Dosage: FOR 5 DAYS
     Dates: start: 20111226, end: 20120203

REACTIONS (6)
  - Chest pain [None]
  - Abdominal pain upper [None]
  - Pyrexia [None]
  - Neutropenia [None]
  - Cough [None]
  - Vomiting [None]
